FAERS Safety Report 12506473 (Version 17)
Quarter: 2019Q1

REPORT INFORMATION
  Report Type: Report from Study
  Country: US (occurrence: US)
  Receive Date: 20160628
  Receipt Date: 20190322
  Transmission Date: 20190417
  Serious: Yes (Hospitalization)
  Sender: FDA-Public Use
  Company Number: US-ACTELION-A-US2016-138380

PATIENT
  Age: 16 Year
  Sex: Female
  Weight: 48.53 kg

DRUGS (9)
  1. LETAIRIS [Concomitant]
     Active Substance: AMBRISENTAN
  2. REVATIO [Concomitant]
     Active Substance: SILDENAFIL CITRATE
  3. ADCIRCA [Concomitant]
     Active Substance: TADALAFIL
  4. OPSUMIT [Suspect]
     Active Substance: MACITENTAN
     Dosage: 10 MG, QD
     Route: 048
  5. COUMADIN [Concomitant]
     Active Substance: WARFARIN SODIUM
  6. PREDNISONE. [Concomitant]
     Active Substance: PREDNISONE
  7. CEPHALEXIN. [Concomitant]
     Active Substance: CEPHALEXIN
  8. OPSUMIT [Suspect]
     Active Substance: MACITENTAN
     Indication: PULMONARY ARTERIAL HYPERTENSION
     Dosage: 10 MG, QD
     Route: 048
     Dates: start: 20160531
  9. REMODULIN [Suspect]
     Active Substance: TREPROSTINIL
     Indication: PRODUCT USED FOR UNKNOWN INDICATION
     Dosage: UNK
     Route: 042
     Dates: start: 20170619

REACTIONS (31)
  - Pain [Unknown]
  - Application site hypersensitivity [Unknown]
  - Skin infection [Unknown]
  - Product dose omission [Unknown]
  - Dyspnoea exertional [Unknown]
  - Pleural effusion [Unknown]
  - Injection site pain [Unknown]
  - Catheter site cellulitis [Unknown]
  - Infusion site infection [Unknown]
  - Myalgia [Unknown]
  - Injection site cellulitis [Unknown]
  - Ill-defined disorder [Unknown]
  - Device related infection [Unknown]
  - Device issue [Unknown]
  - Malaise [Unknown]
  - Application site pruritus [Unknown]
  - Blister [Unknown]
  - Catheter site vesicles [Unknown]
  - Catheter site pruritus [Unknown]
  - Dyspnoea [Unknown]
  - Application site pain [Unknown]
  - Skin laceration [Unknown]
  - Catheter site haemorrhage [Unknown]
  - Catheter site swelling [Unknown]
  - Application site vesicles [Unknown]
  - Dermatitis contact [Unknown]
  - Catheter site erythema [Unknown]
  - Catheter site warmth [Unknown]
  - Application site rash [Unknown]
  - Catheter site pain [Unknown]
  - Hypersensitivity [Unknown]

NARRATIVE: CASE EVENT DATE: 201605
